FAERS Safety Report 17415881 (Version 1)
Quarter: 2020Q1

REPORT INFORMATION
  Report Type: Spontaneous
  Country: US (occurrence: US)
  Receive Date: 20200213
  Receipt Date: 20200213
  Transmission Date: 20200409
  Serious: No
  Sender: FDA-Public Use
  Company Number: US-SUNOVION-2020SUN000390

PATIENT
  Age: 35 Year
  Sex: Female

DRUGS (2)
  1. LATUDA [Suspect]
     Active Substance: LURASIDONE HYDROCHLORIDE
     Dosage: UNK
     Route: 048
  2. LEVOTHYROXINE NA [Suspect]
     Active Substance: LEVOTHYROXINE SODIUM
     Dosage: 25 ?G

REACTIONS (1)
  - Feeling abnormal [Unknown]
